FAERS Safety Report 10014538 (Version 1)
Quarter: 2014Q1

REPORT INFORMATION
  Report Type: Not Available
  Country: FR (occurrence: FR)
  Receive Date: 20140317
  Receipt Date: 20140317
  Transmission Date: 20141002
  Serious: Yes (Hospitalization)
  Sender: FDA-Public Use
  Company Number: FR-ASTELLAS-2014EU002142

PATIENT
  Age: 34 Year
  Sex: Male

DRUGS (3)
  1. PROGRAF [Suspect]
     Dosage: 2 MG, BID
     Route: 048
     Dates: start: 20130309
  2. CELLCEPT /01275102/ [Suspect]
     Dosage: 1 G, BID
     Route: 065
     Dates: start: 20130309, end: 20140207
  3. ARANESP [Suspect]
     Dosage: 80 UG, WEEKLY
     Route: 058
     Dates: start: 20130309, end: 20140128

REACTIONS (2)
  - Anaemia [Not Recovered/Not Resolved]
  - Bone marrow failure [Not Recovered/Not Resolved]
